FAERS Safety Report 7386540-4 (Version None)
Quarter: 2011Q1

REPORT INFORMATION
  Report Type: 
  Country: None (occurrence: None)
  Receive Date: 20110329
  Receipt Date: 20110329
  Transmission Date: 20110831
  Serious: Yes (Death)
  Sender: FDA-Public Use
  Company Number: None

PATIENT
  Age: 63 Year
  Sex: Male
  Weight: 65.7716 kg

DRUGS (1)
  1. LEVAQUIN [Suspect]
     Indication: BRONCHIECTASIS
     Dosage: 1 PER DAY 14 DAYS PO
     Route: 048
     Dates: start: 20100919, end: 20101003

REACTIONS (2)
  - PANCYTOPENIA [None]
  - SPLENOMEGALY [None]
